FAERS Safety Report 23661123 (Version 2)
Quarter: 2024Q2

REPORT INFORMATION
  Report Type: Spontaneous
  Country: US (occurrence: US)
  Receive Date: 20240322
  Receipt Date: 20240501
  Transmission Date: 20240716
  Serious: No
  Sender: FDA-Public Use
  Company Number: US-AMGEN-USASP2024056687

PATIENT
  Age: 72 Year
  Sex: Female

DRUGS (3)
  1. REPATHA [Suspect]
     Active Substance: EVOLOCUMAB
     Indication: Type IIa hyperlipidaemia
     Dosage: UNK
     Route: 065
     Dates: start: 2023
  2. REPATHA [Suspect]
     Active Substance: EVOLOCUMAB
     Dosage: 140 MILLIGRAM, Q2WK
     Route: 058
  3. REPATHA [Suspect]
     Active Substance: EVOLOCUMAB
     Dosage: 140 MILLIGRAM, Q2WK
     Route: 058

REACTIONS (5)
  - Incorrect disposal of product [Unknown]
  - Device use error [Unknown]
  - Wrong technique in product usage process [Unknown]
  - Drug dose omission by device [Unknown]
  - Device difficult to use [Unknown]

NARRATIVE: CASE EVENT DATE: 20240101
